FAERS Safety Report 8312063-1 (Version None)
Quarter: 2012Q2

REPORT INFORMATION
  Report Type: 
  Country: None (occurrence: None)
  Receive Date: 20120425
  Receipt Date: 20110524
  Transmission Date: 20120825
  Serious: Yes (Other)
  Sender: FDA-Public Use
  Company Number: US-TEVA-2011002630

PATIENT
  Sex: Female
  Weight: 63.56 kg

DRUGS (6)
  1. PROVIGIL [Suspect]
     Dosage: 100 MILLIGRAM;
     Route: 048
  2. VITAMIN AND MINERAL PRENATAL SUPPLEMENT W/ FOLIC ACID CAP [Concomitant]
  3. PROVIGIL [Suspect]
     Dosage: 200 MILLIGRAM;
     Route: 048
  4. PROVIGIL [Suspect]
     Indication: SOMNOLENCE
     Dosage: 400 MILLIGRAM;
     Route: 048
     Dates: start: 20041201
  5. PROVIGIL [Suspect]
     Dosage: 200 MILLIGRAM;
     Route: 048
  6. ZOFRAN [Concomitant]

REACTIONS (2)
  - MATERNAL EXPOSURE DURING PREGNANCY [None]
  - NAUSEA [None]
